FAERS Safety Report 10460253 (Version 1)
Quarter: 2014Q3

REPORT INFORMATION
  Report Type: Spontaneous
  Country: US (occurrence: US)
  Receive Date: 20140917
  Receipt Date: 20140917
  Transmission Date: 20150326
  Serious: No
  Sender: FDA-Public Use
  Company Number: US-009507513-1409USA005562

PATIENT
  Age: 41 Year
  Sex: Female
  Weight: 76.64 kg

DRUGS (1)
  1. ZEGERID OTC CAPSULES [Suspect]
     Active Substance: OMEPRAZOLE\SODIUM BICARBONATE
     Indication: GASTROOESOPHAGEAL REFLUX DISEASE
     Dosage: 20 MG, QD
     Route: 048
     Dates: start: 20140510, end: 20140618

REACTIONS (2)
  - Incorrect drug administration duration [Unknown]
  - Product physical issue [Unknown]

NARRATIVE: CASE EVENT DATE: 201405
